FAERS Safety Report 19644708 (Version 2)
Quarter: 2021Q3

REPORT INFORMATION
  Report Type: Spontaneous
  Country: DK (occurrence: DK)
  Receive Date: 20210802
  Receipt Date: 20210916
  Transmission Date: 20211014
  Serious: Yes (Death, Congenital Anomaly)
  Sender: FDA-Public Use
  Company Number: DK-BEH-2021134274

PATIENT

DRUGS (3)
  1. PRIVIGEN [Suspect]
     Active Substance: HUMAN IMMUNOGLOBULIN G
     Indication: HABITUAL ABORTION
     Dosage: 30 GRAM, QW, STRENGTH: 100 MG/ML
     Route: 064
     Dates: start: 20210216, end: 20210518
  2. EUTHYROX [Concomitant]
     Active Substance: LEVOTHYROXINE SODIUM
     Indication: HYPOMETABOLISM
     Route: 064
     Dates: start: 20200615
  3. HJERTEMAGNYL [ACETYLSALICYLIC ACID] [Concomitant]
     Active Substance: ASPIRIN
     Indication: FOETAL GROWTH RESTRICTION
     Route: 064
     Dates: start: 20210423, end: 20210521

REACTIONS (4)
  - Off label use [Unknown]
  - Univentricular heart [Fatal]
  - No adverse event [Unknown]
  - Foetal exposure during pregnancy [Fatal]

NARRATIVE: CASE EVENT DATE: 20210519
